FAERS Safety Report 9508524 (Version 3)
Quarter: 2013Q4

REPORT INFORMATION
  Report Type: Spontaneous
  Country: JP (occurrence: JP)
  Receive Date: 20130909
  Receipt Date: 20131008
  Transmission Date: 20140711
  Serious: Yes (Other)
  Sender: FDA-Public Use
  Company Number: JP-PFIZER INC-2013257279

PATIENT
  Age: 14 Year
  Sex: Female
  Weight: 79.5 kg

DRUGS (5)
  1. LYRICA [Suspect]
     Indication: NEURALGIA
     Dosage: 75 MG, 1X/DAY
     Route: 048
     Dates: start: 20120625, end: 20130901
  2. LYRICA [Suspect]
     Dosage: 75 MG X 50 CAPSULES
     Route: 048
     Dates: start: 20130902, end: 20130902
  3. LYRICA [Suspect]
     Dosage: 75 MG X 200 CAPSULES
     Route: 048
     Dates: start: 20130903, end: 20130903
  4. GASTER D [Concomitant]
     Indication: GASTRITIS
     Dosage: 20 MG, 2X/DAY
     Route: 048
     Dates: start: 20120709, end: 20130904
  5. BRUFEN [Concomitant]
     Indication: HEADACHE
     Dosage: 200 MG, AS NEEDED
     Route: 048
     Dates: start: 20120625, end: 20130904

REACTIONS (7)
  - Intentional overdose [Recovered/Resolved]
  - Suicide attempt [Recovered/Resolved]
  - Depression [Recovered/Resolved]
  - Retrograde amnesia [Recovered/Resolved]
  - Thought blocking [Recovered/Resolved]
  - Dehydration [Recovered/Resolved]
  - Dizziness [Recovered/Resolved]
